FAERS Safety Report 7963192-3 (Version None)
Quarter: 2011Q4

REPORT INFORMATION
  Report Type: 
  Country: None (occurrence: None)
  Receive Date: 20111208
  Receipt Date: 20111201
  Transmission Date: 20120403
  Serious: Yes (Hospitalization)
  Sender: FDA-Public Use
  Company Number: DE-BIOGENIDEC-2011BI043945

PATIENT
  Age: 36 Year
  Sex: Female

DRUGS (3)
  1. FAMPYRA [Concomitant]
     Indication: GAIT DISTURBANCE
     Route: 048
     Dates: start: 20110901, end: 20110901
  2. LYRICA [Concomitant]
     Indication: PARAESTHESIA
     Dates: start: 20110601, end: 20110901
  3. TYSABRI [Suspect]
     Indication: MULTIPLE SCLEROSIS
     Route: 042
     Dates: start: 20090707, end: 20110915

REACTIONS (2)
  - MULTIPLE SCLEROSIS RELAPSE [None]
  - HEPATITIS TOXIC [None]
